FAERS Safety Report 8373902-1 (Version None)
Quarter: 2012Q2

REPORT INFORMATION
  Report Type: 
  Country: None (occurrence: None)
  Receive Date: 20120521
  Receipt Date: 20120510
  Transmission Date: 20120825
  Serious: Yes (Other)
  Sender: FDA-Public Use
  Company Number: US-ASTRAZENECA-2012SE30426

PATIENT
  Sex: Female

DRUGS (2)
  1. FASLODEX [Suspect]
     Route: 030
  2. ARIMIDEX [Suspect]
     Route: 048

REACTIONS (2)
  - HEPATITIS [None]
  - NEOPLASM PROGRESSION [None]
